FAERS Safety Report 7529371-4 (Version None)
Quarter: 2011Q2

REPORT INFORMATION
  Report Type: 
  Country: None (occurrence: None)
  Receive Date: 20110520
  Receipt Date: 20110128
  Transmission Date: 20111010
  Serious: No
  Sender: FDA-Public Use
  Company Number: 026518

PATIENT
  Age: 49 Year
  Sex: Male

DRUGS (1)
  1. LACOSAMIDE [Suspect]
     Dosage: (50 MG BID)

REACTIONS (2)
  - DYSPNOEA [None]
  - HEART RATE IRREGULAR [None]
